FAERS Safety Report 22314006 (Version 2)
Quarter: 2023Q2

REPORT INFORMATION
  Report Type: Report from Study
  Country: US (occurrence: US)
  Receive Date: 20230512
  Receipt Date: 20230531
  Transmission Date: 20230721
  Serious: Yes (Other)
  Sender: FDA-Public Use
  Company Number: US-JNJFOC-20230519707

PATIENT
  Age: 77 Year
  Sex: Male
  Weight: 92.616 kg

DRUGS (1)
  1. ERLEADA [Suspect]
     Active Substance: APALUTAMIDE
     Indication: Prostate cancer
     Route: 048
     Dates: start: 2023

REACTIONS (3)
  - Blood pressure increased [Unknown]
  - Weight increased [Unknown]
  - Product dose omission issue [Unknown]
